FAERS Safety Report 20447247 (Version 2)
Quarter: 2022Q2

REPORT INFORMATION
  Report Type: Spontaneous
  Country: PT (occurrence: PT)
  Receive Date: 20220209
  Receipt Date: 20220415
  Transmission Date: 20220720
  Serious: Yes (Hospitalization, Disabling, Other)
  Sender: FDA-Public Use
  Company Number: PT-Zentiva-2022-ZT-000918

PATIENT
  Age: 70 Year
  Sex: Male

DRUGS (2)
  1. METFORMIN [Suspect]
     Active Substance: METFORMIN HYDROCHLORIDE
     Indication: Type 2 diabetes mellitus
     Dosage: 2550 MILLIGRAM, ONCE A DAY (850 MG TID)
     Route: 048
  2. METFORMIN [Suspect]
     Active Substance: METFORMIN HYDROCHLORIDE
     Dosage: 850 MILLIGRAM, 3 TIMES A DAY
     Route: 065

REACTIONS (8)
  - Areflexia [Recovering/Resolving]
  - Walking disability [Recovering/Resolving]
  - Paraplegia [Recovering/Resolving]
  - Pain in extremity [Recovering/Resolving]
  - Myelopathy [Recovering/Resolving]
  - Muscular weakness [Recovering/Resolving]
  - Vitamin B12 deficiency [Recovered/Resolved]
  - Neuropathy vitamin B12 deficiency [Recovering/Resolving]

NARRATIVE: CASE EVENT DATE: 20141101
